FAERS Safety Report 5521495-6 (Version None)
Quarter: 2007Q4

REPORT INFORMATION
  Report Type: 
  Country: None (occurrence: None)
  Receive Date: 20071119
  Receipt Date: 20071109
  Transmission Date: 20080405
  Serious: Yes (Other)
  Sender: FDA-Public Use
  Company Number: US-PFIZER INC-2007096103

PATIENT
  Sex: Female

DRUGS (1)
  1. LIPITOR [Suspect]
     Route: 048

REACTIONS (3)
  - BLOOD CHOLESTEROL INCREASED [None]
  - LOW DENSITY LIPOPROTEIN INCREASED [None]
  - MUSCLE DISORDER [None]
